FAERS Safety Report 9458374 (Version 2)
Quarter: 2013Q4

REPORT INFORMATION
  Report Type: Spontaneous
  Country: CN (occurrence: CN)
  Receive Date: 20130814
  Receipt Date: 20131021
  Transmission Date: 20140711
  Serious: Yes (Other)
  Sender: FDA-Public Use
  Company Number: CN-BAYER-2013-096574

PATIENT
  Sex: Male

DRUGS (2)
  1. GLUCOBAY [Suspect]
     Indication: DIABETES MELLITUS
     Dosage: 50 MG, TID
     Route: 048
  2. GLUCOBAY [Suspect]
     Indication: DIABETES MELLITUS
     Dosage: 6 DF, TID

REACTIONS (1)
  - Diabetes mellitus inadequate control [Recovered/Resolved]
